FAERS Safety Report 7852219-5 (Version None)
Quarter: 2011Q4

REPORT INFORMATION
  Report Type: 
  Country: None (occurrence: None)
  Receive Date: 20111026
  Receipt Date: 20111012
  Transmission Date: 20120403
  Serious: Yes (Other)
  Sender: FDA-Public Use
  Company Number: US-ELI_LILLY_AND_COMPANY-US201010005703

PATIENT
  Sex: Female
  Weight: 57.143 kg

DRUGS (6)
  1. FORTEO [Suspect]
     Dosage: 20 UG, QD
  2. FORTEO [Suspect]
     Dosage: 20 UG, QD
  3. FORTEO [Suspect]
     Indication: OSTEOPOROSIS
     Dosage: 20 UG, DAILY (1/D)
     Dates: start: 20100801
  4. FORTEO [Suspect]
     Dosage: 20 UG, DAILY (1/D)
  5. NEURONTIN [Concomitant]
  6. FORTEO [Suspect]
     Dosage: 20 UG, DAILY (1/D)

REACTIONS (12)
  - ABDOMINAL PAIN [None]
  - INJECTION SITE ERYTHEMA [None]
  - INJECTION SITE HAEMATOMA [None]
  - ABDOMINAL DISCOMFORT [None]
  - MIDDLE INSOMNIA [None]
  - BONE DENSITY DECREASED [None]
  - BACK DISORDER [None]
  - BALANCE DISORDER [None]
  - DRUG DOSE OMISSION [None]
  - HEADACHE [None]
  - DIZZINESS [None]
  - WEIGHT DECREASED [None]
